FAERS Safety Report 18568793 (Version 1)
Quarter: 2020Q4

REPORT INFORMATION
  Report Type: Spontaneous
  Country: FR (occurrence: FR)
  Receive Date: 20201202
  Receipt Date: 20201202
  Transmission Date: 20210114
  Serious: Yes (Death, Life-Threatening)
  Sender: FDA-Public Use
  Company Number: NVSC2020FR319450

PATIENT
  Age: 86 Year
  Sex: Male
  Weight: 68 kg

DRUGS (2)
  1. CARBOPLATIN. [Suspect]
     Active Substance: CARBOPLATIN
     Indication: LUNG ADENOCARCINOMA
     Dosage: 120 MG,CYCLIC
     Route: 042
     Dates: start: 20201023, end: 20201023
  2. PEMETREXED. [Suspect]
     Active Substance: PEMETREXED
     Indication: LUNG ADENOCARCINOMA
     Dosage: 890 MG,CYCLIC
     Route: 042
     Dates: start: 20201023, end: 20201023

REACTIONS (3)
  - Colitis [Fatal]
  - Septic shock [Fatal]
  - Acute kidney injury [Fatal]

NARRATIVE: CASE EVENT DATE: 20201030
